FAERS Safety Report 9592265 (Version 3)
Quarter: 2013Q4

REPORT INFORMATION
  Report Type: Report from Study
  Country: FR (occurrence: FR)
  Receive Date: 20131004
  Receipt Date: 20131021
  Transmission Date: 20140711
  Serious: Yes (Hospitalization)
  Sender: FDA-Public Use
  Company Number: FR-MERCK-2011SP025841

PATIENT
  Age: 73 Year
  Sex: Male
  Weight: 83 kg

DRUGS (8)
  1. BOCEPREVIR [Suspect]
     Indication: CHRONIC HEPATITIS C
     Dosage: 800 MG, TID
     Route: 048
     Dates: start: 20110506, end: 20110729
  2. VIRAFERONPEG [Suspect]
     Indication: CHRONIC HEPATITIS C
     Dosage: 120 ?G, QW
     Route: 058
     Dates: start: 20110406, end: 20110729
  3. REBETOL [Suspect]
     Indication: CHRONIC HEPATITIS C
     Dosage: 1200 MG, QD
     Route: 048
     Dates: start: 20110406, end: 20110531
  4. REBETOL [Suspect]
     Dosage: 1200 UNK, UNK
     Route: 048
     Dates: end: 20110729
  5. AVLOCARDYL [Concomitant]
     Indication: PULMONARY HYPERTENSION
     Dosage: AVLOCARDYL LP
     Route: 048
     Dates: start: 20110318
  6. CITALOPRAM [Concomitant]
     Indication: DEPRESSION
     Dosage: 20 MG, QD
     Route: 048
     Dates: start: 20110507, end: 20110726
  7. ALDACTONE TABLETS [Concomitant]
     Indication: DIURETIC THERAPY
     Dosage: 50 MG, UNK
     Route: 048
     Dates: start: 20110601
  8. LEVOTHYROX [Concomitant]
     Indication: HYPOTHYROIDISM
     Dosage: 75 ?G, QD
     Route: 048
     Dates: start: 20110601

REACTIONS (7)
  - Disorientation [Not Recovered/Not Resolved]
  - Pyelonephritis acute [Not Recovered/Not Resolved]
  - Pyrexia [Not Recovered/Not Resolved]
  - Hepatic encephalopathy [Recovered/Resolved]
  - Haemolytic anaemia [Recovered/Resolved]
  - Asthenia [Recovered/Resolved]
  - Sepsis [Recovered/Resolved]
